FAERS Safety Report 4633999-9 (Version None)
Quarter: 2005Q2

REPORT INFORMATION
  Report Type: 
  Country: None (occurrence: None)
  Receive Date: 20050325
  Receipt Date: 20041214
  Transmission Date: 20051028
  Serious: No
  Sender: FDA-Public Use
  Company Number: USA041286187

PATIENT
  Age: 87 Year
  Sex: Female
  Weight: 66 kg

DRUGS (3)
  1. FORTEO [Suspect]
     Indication: OSTEOPOROSIS
     Dates: start: 20040701
  2. DITROPAN XL [Concomitant]
  3. DETROL LA [Concomitant]

REACTIONS (5)
  - BACK PAIN [None]
  - DIZZINESS [None]
  - FATIGUE [None]
  - HEARING IMPAIRED [None]
  - WALKING AID USER [None]
